FAERS Safety Report 4383438-0 (Version None)
Quarter: 2004Q2

REPORT INFORMATION
  Report Type: 
  Country: None (occurrence: None)
  Receive Date: 20040618
  Receipt Date: 20040604
  Transmission Date: 20050107
  Serious: Yes (Hospitalization)
  Sender: FDA-Public Use
  Company Number: GBR-2004-0001111

PATIENT
  Age: 83 Year
  Sex: Female

DRUGS (12)
  1. SEVREDOL TABLETS (MORPHINE SULFATE) IR TABLET [Suspect]
     Indication: PHANTOM PAIN
     Dosage: 30 MG, DAILY, ORAL
     Route: 048
     Dates: end: 20040419
  2. ZESTRIL [Concomitant]
  3. TEGRETOL [Concomitant]
  4. LASIX [Concomitant]
  5. CLONAZEPAM [Concomitant]
  6. DEROXAT (PAROXETINE HYDROCHLORIDE) [Concomitant]
  7. AUGMENTIN [Concomitant]
  8. ASPIRIN [Concomitant]
  9. CACIT (CALCIUM CARBONATE, CITRIC ACID [Concomitant]
  10. DEDROGYL (CALCIFEDIOL) [Concomitant]
  11. MOTILIUM   BYK GULDEN (DOMPERIDONE) [Concomitant]
  12. ACETAMINOPHEN [Concomitant]

REACTIONS (12)
  - BLOOD CALCIUM DECREASED [None]
  - BLOOD CREATININE INCREASED [None]
  - BLOOD GLUCOSE INCREASED [None]
  - BLOOD PRESSURE DECREASED [None]
  - BLOOD UREA INCREASED [None]
  - C-REACTIVE PROTEIN INCREASED [None]
  - CONSTIPATION [None]
  - DEPRESSED LEVEL OF CONSCIOUSNESS [None]
  - MIOSIS [None]
  - PROTEIN TOTAL INCREASED [None]
  - RESPIRATORY DISTRESS [None]
  - RESPIRATORY RATE DECREASED [None]
